FAERS Safety Report 7936888-7 (Version None)
Quarter: 2011Q4

REPORT INFORMATION
  Report Type: 
  Country: None (occurrence: None)
  Receive Date: 20111123
  Receipt Date: 20111117
  Transmission Date: 20120403
  Serious: Yes (Death)
  Sender: FDA-Public Use
  Company Number: SE-ROCHE-1014103

PATIENT
  Age: 68 Year
  Sex: Female

DRUGS (5)
  1. MABTHERA [Suspect]
     Indication: SERONEGATIVE ARTHRITIS
     Dosage: 1GMN GMN
     Route: 042
     Dates: start: 20090113, end: 20090405
  2. IBUPROFEN [Concomitant]
  3. PREDNISOLONE [Concomitant]
  4. SULFASALAZINE [Concomitant]
  5. PLAQUENIL [Concomitant]

REACTIONS (2)
  - PULMONARY FIBROSIS [None]
  - INTERSTITIAL LUNG DISEASE [None]
